FAERS Safety Report 4585428-1 (Version None)
Quarter: 2005Q1

REPORT INFORMATION
  Report Type: 
  Country: None (occurrence: None)
  Receive Date: 20050217
  Receipt Date: 20050216
  Transmission Date: 20050727
  Serious: Yes (Death)
  Sender: FDA-Public Use
  Company Number: DE-BRISTOL-MYERS SQUIBB COMPANY-12866208

PATIENT
  Age: 65 Year
  Sex: Male
  Weight: 62 kg

DRUGS (2)
  1. PACLITAXEL [Suspect]
     Indication: NON-SMALL CELL LUNG CANCER
     Route: 042
     Dates: start: 20040722, end: 20040722
  2. CARBOPLATIN [Suspect]
     Indication: NON-SMALL CELL LUNG CANCER
     Route: 042
     Dates: start: 20040722, end: 20040722

REACTIONS (2)
  - PNEUMONIA [None]
  - RESPIRATORY FAILURE [None]
